FAERS Safety Report 10050101 (Version 3)
Quarter: 2014Q2

REPORT INFORMATION
  Report Type: Spontaneous
  Country: BR (occurrence: BR)
  Receive Date: 20140401
  Receipt Date: 20140502
  Transmission Date: 20141212
  Serious: Yes (Hospitalization, Other)
  Sender: FDA-Public Use
  Company Number: BR-ASTRAZENECA-2014SE20729

PATIENT
  Age: 61 Year
  Sex: Female
  Weight: 97 kg

DRUGS (13)
  1. NEXIUM [Suspect]
     Indication: GASTRIC DISORDER
     Route: 048
     Dates: start: 201306, end: 201307
  2. SELOZOK [Suspect]
     Indication: TACHYCARDIA
     Route: 048
     Dates: start: 2012
  3. CRESTOR [Suspect]
     Indication: BLOOD CHOLESTEROL INCREASED
     Route: 048
     Dates: start: 2011
  4. ZOLOFT [Suspect]
     Indication: ANXIETY
     Dosage: AS REQUIRED
     Route: 065
     Dates: start: 2013
  5. GLIMEPIRIDE [Suspect]
     Indication: TYPE 2 DIABETES MELLITUS
     Dosage: DAILY
     Route: 048
     Dates: start: 2010, end: 201209
  6. CHEMOTHERAPY [Suspect]
     Indication: CERVIX CARCINOMA
     Route: 065
     Dates: start: 201308, end: 2013
  7. RADIOTHERAPY [Suspect]
     Indication: CERVIX CARCINOMA
     Route: 065
     Dates: start: 201308, end: 2013
  8. DIAMICRON [Concomitant]
     Indication: TYPE 2 DIABETES MELLITUS
     Route: 048
     Dates: start: 201209
  9. ASPIRINA [Concomitant]
     Indication: ISCHAEMIC HEART DISEASE PROPHYLAXIS
     Dosage: DAILY
     Route: 048
     Dates: start: 2006
  10. GALVUS [Concomitant]
     Indication: TYPE 2 DIABETES MELLITUS
     Dosage: TWO TIMES A DAY
     Route: 048
     Dates: start: 2003
  11. ALENDRONATE SODIUM [Concomitant]
     Indication: OSTEOPENIA
     Dosage: ONCE A WEEK
     Route: 048
     Dates: start: 201209
  12. PANTOPRAZOLE [Concomitant]
     Indication: GASTROOESOPHAGEAL REFLUX PROPHYLAXIS
     Dosage: DAILY
     Route: 048
     Dates: start: 2004, end: 201306
  13. PANTOPRAZOLE [Concomitant]
     Indication: GASTROOESOPHAGEAL REFLUX PROPHYLAXIS
     Dosage: DAILY
     Route: 048
     Dates: start: 201307

REACTIONS (12)
  - Renal failure [Not Recovered/Not Resolved]
  - Herpes virus infection [Recovering/Resolving]
  - Anaemia [Not Recovered/Not Resolved]
  - Cervix carcinoma [Recovering/Resolving]
  - Osteopenia [Recovering/Resolving]
  - Tachycardia [Recovered/Resolved]
  - Flatulence [Recovered/Resolved]
  - Anxiety [Recovering/Resolving]
  - Memory impairment [Recovered/Resolved]
  - Somnolence [Not Recovered/Not Resolved]
  - Vein disorder [Not Recovered/Not Resolved]
  - Off label use [Not Recovered/Not Resolved]
